FAERS Safety Report 8794873 (Version 2)
Quarter: 2015Q1

REPORT INFORMATION
  Report Type: Report from Study
  Country: US (occurrence: US)
  Receive Date: 20120918
  Receipt Date: 20150116
  Transmission Date: 20150721
  Serious: Yes (Death)
  Sender: FDA-Public Use
  Company Number: US-ROCHE-1123146

PATIENT
  Sex: Male

DRUGS (4)
  1. BACTRIM [Suspect]
     Active Substance: SULFAMETHOXAZOLE\TRIMETHOPRIM
     Indication: PRODUCT USED FOR UNKNOWN INDICATION
     Route: 065
  2. TEMODAR [Concomitant]
     Active Substance: TEMOZOLOMIDE
  3. HYDROCHLOROTHIAZIDE. [Concomitant]
     Active Substance: HYDROCHLOROTHIAZIDE
     Indication: BLOOD PRESSURE
  4. AVASTIN [Suspect]
     Active Substance: BEVACIZUMAB
     Indication: BRAIN NEOPLASM MALIGNANT
     Route: 042

REACTIONS (8)
  - Death [Fatal]
  - Optic ischaemic neuropathy [Unknown]
  - Hypertension [Unknown]
  - Visual impairment [Unknown]
  - Papilloedema [Unknown]
  - Vomiting [Unknown]
  - Strabismus [Unknown]
  - Optic atrophy [Unknown]
